FAERS Safety Report 13126330 (Version 1)
Quarter: 2017Q1

REPORT INFORMATION
  Report Type: Spontaneous
  Country: DE (occurrence: DE)
  Receive Date: 20170118
  Receipt Date: 20170118
  Transmission Date: 20170428
  Serious: Yes (Congenital Anomaly)
  Sender: FDA-Public Use
  Company Number: DE-PFIZER INC-2017016786

PATIENT
  Sex: Male
  Weight: 2.98 kg

DRUGS (2)
  1. FOLIC ACID. [Concomitant]
     Active Substance: FOLIC ACID
     Indication: PROPHYLAXIS OF NEURAL TUBE DEFECT
     Dosage: TRIMESTER: UNKNOWN TRIMESTER
     Route: 064
  2. VENLAFAXINE HCL [Suspect]
     Active Substance: VENLAFAXINE HYDROCHLORIDE
     Indication: DEPRESSION
     Dosage: 75 MG, 1X/DAY
     Route: 064
     Dates: start: 20150125, end: 20151012

REACTIONS (3)
  - Ventricular septal defect [Recovered/Resolved]
  - Maternal exposure during pregnancy [Unknown]
  - Foetal heart rate deceleration abnormality [Unknown]

NARRATIVE: CASE EVENT DATE: 20150125
